FAERS Safety Report 25307400 (Version 2)
Quarter: 2025Q2

REPORT INFORMATION
  Report Type: Spontaneous
  Country: JP (occurrence: JP)
  Receive Date: 20250513
  Receipt Date: 20250527
  Transmission Date: 20250716
  Serious: Yes (Death)
  Sender: FERRING
  Company Number: JP-ferring-EVA202500650FERRINGPH

PATIENT

DRUGS (7)
  1. NOCDURNA [Suspect]
     Active Substance: DESMOPRESSIN ACETATE
     Indication: Nocturia
     Dosage: 25 UG, DAILY
     Route: 048
     Dates: start: 20250402
  2. NOCDURNA [Suspect]
     Active Substance: DESMOPRESSIN ACETATE
     Dosage: 25 UG, DAILY
     Route: 048
     Dates: start: 202403, end: 202409
  3. NOCDURNA [Suspect]
     Active Substance: DESMOPRESSIN ACETATE
     Dosage: 25 UG, DAILY
     Route: 048
     Dates: start: 202310, end: 202312
  4. NOCDURNA [Suspect]
     Active Substance: DESMOPRESSIN ACETATE
     Indication: Nocturia
     Dosage: 50 UG, DAILY
     Route: 048
     Dates: start: 202312, end: 202402
  5. MAGNESIUM OXIDE [Concomitant]
     Active Substance: MAGNESIUM OXIDE
     Indication: Product used for unknown indication
     Route: 065
  6. NAFTOPIDIL [Concomitant]
     Active Substance: NAFTOPIDIL
     Indication: Product used for unknown indication
     Route: 065
  7. VIBEGRON [Concomitant]
     Active Substance: VIBEGRON
     Indication: Product used for unknown indication
     Route: 065

REACTIONS (1)
  - Death [Fatal]

NARRATIVE: CASE EVENT DATE: 20250101
